FAERS Safety Report 15403701 (Version 1)
Quarter: 2018Q3

REPORT INFORMATION
  Report Type: Spontaneous
  Country: US (occurrence: US)
  Receive Date: 20180919
  Receipt Date: 20180919
  Transmission Date: 20181010
  Serious: No
  Sender: FDA-Public Use
  Company Number: US-ALLERGAN-1823804US

PATIENT
  Age: 83 Year
  Sex: Female
  Weight: 49.9 kg

DRUGS (2)
  1. PRED FORTE [Suspect]
     Active Substance: PREDNISOLONE ACETATE
     Indication: MACULAR FIBROSIS
     Dosage: 2 GTT, QID
     Route: 047
     Dates: start: 20180312
  2. KETOROLAC TROMETHAMINE 0.5% [Suspect]
     Active Substance: KETOROLAC TROMETHAMINE
     Indication: MACULAR FIBROSIS
     Dosage: 2 GTT, QID
     Route: 047
     Dates: start: 20180312

REACTIONS (2)
  - Product packaging quantity issue [Unknown]
  - Drug dose omission [Unknown]

NARRATIVE: CASE EVENT DATE: 20180430
